FAERS Safety Report 4513563-2 (Version None)
Quarter: 2004Q4

REPORT INFORMATION
  Report Type: 
  Country: None (occurrence: None)
  Receive Date: 20041130
  Receipt Date: 20040802
  Transmission Date: 20050328
  Serious: No
  Sender: FDA-Public Use
  Company Number: US-GLAXOSMITHKLINE-A0520549A

PATIENT
  Age: 62 Year
  Sex: Female
  Weight: 85.5 kg

DRUGS (9)
  1. WELLBUTRIN XL [Suspect]
     Indication: DEPRESSION
     Dosage: 300MG PER DAY
     Route: 048
  2. LEXAPRO [Concomitant]
     Indication: DEPRESSION
     Dosage: 30MG PER DAY
     Route: 048
     Dates: start: 20030101
  3. XANAX [Concomitant]
     Indication: ANXIETY
     Dosage: .15MG PER DAY
     Route: 048
     Dates: start: 20030101
  4. PROVIGIL [Concomitant]
     Indication: INSOMNIA
     Dosage: 100MG IN THE MORNING
     Route: 048
     Dates: start: 20040101
  5. ALLEGRA [Concomitant]
  6. LEVOXYL [Concomitant]
  7. CELEBREX [Concomitant]
  8. CYTOMEL [Concomitant]
  9. ZOCOR [Concomitant]

REACTIONS (2)
  - MOUTH ULCERATION [None]
  - URTICARIA [None]
